FAERS Safety Report 7102656-1 (Version None)
Quarter: 2010Q4

REPORT INFORMATION
  Report Type: 
  Country: None (occurrence: None)
  Receive Date: 20101115
  Receipt Date: 20070501
  Transmission Date: 20110411
  Serious: Yes (Other)
  Sender: FDA-Public Use
  Company Number: NL-ROCHE-741234

PATIENT

DRUGS (1)
  1. HERCEPTIN [Suspect]
     Route: 042

REACTIONS (1)
  - CARDIAC ARREST [None]
